FAERS Safety Report 20830319 (Version 2)
Quarter: 2022Q2

REPORT INFORMATION
  Report Type: Report from Study
  Country: MX (occurrence: MX)
  Receive Date: 20220514
  Receipt Date: 20220520
  Transmission Date: 20220721
  Serious: Yes (Death)
  Sender: FDA-Public Use
  Company Number: MX-NOVARTISPH-NVSC2022MX111639

PATIENT
  Sex: Female
  Weight: 54 kg

DRUGS (2)
  1. EXELON [Suspect]
     Active Substance: RIVASTIGMINE TARTRATE
     Indication: Dementia Alzheimer^s type
     Dosage: 4.6 DOSAGE FORM, QD (9 MG / EXELON 5 CM2 PATCH)
     Route: 062
     Dates: start: 2019
  2. EXELON [Suspect]
     Active Substance: RIVASTIGMINE TARTRATE
     Dosage: UNK, QD
     Route: 062

REACTIONS (4)
  - Cerebral ischaemia [Fatal]
  - Blood pressure increased [Fatal]
  - Dementia [Fatal]
  - Therapy non-responder [Unknown]
